FAERS Safety Report 20474525 (Version 1)
Quarter: 2022Q1

REPORT INFORMATION
  Report Type: Spontaneous
  Country: ES (occurrence: ES)
  Receive Date: 20220215
  Receipt Date: 20220215
  Transmission Date: 20220424
  Serious: Yes (Hospitalization, Other)
  Sender: FDA-Public Use
  Company Number: None

PATIENT
  Age: 74 Year
  Sex: Female

DRUGS (6)
  1. JARDIANCE [Suspect]
     Active Substance: EMPAGLIFLOZIN
     Indication: Diabetes mellitus
     Route: 048
     Dates: start: 20211103, end: 20211127
  2. FUROSEMIDE [Concomitant]
     Active Substance: FUROSEMIDE
     Indication: Product used for unknown indication
     Route: 048
     Dates: start: 20210902
  3. OMEPRAZOLE [Concomitant]
     Active Substance: OMEPRAZOLE
     Indication: Product used for unknown indication
     Route: 048
     Dates: end: 20211222
  4. BISOPROLOL CINFA 5 MG COMPRIMIDOS EFG , 60 comprimidos (Blister PVC/PV [Concomitant]
     Indication: Atrial fibrillation
     Route: 048
     Dates: start: 20210902
  5. ENTRESTO 24 MG/26 MG COMPRIMIDOS RECUBIERTOS CON PELICULA, 28 comprimi [Concomitant]
     Indication: Left ventricular dysfunction
     Dosage: STRENGTH- 24 MG/26 MG
     Route: 048
     Dates: start: 20211103
  6. PRADAXA 150 mg CAPSULAS DURAS, 60 c?psulas [Concomitant]
     Indication: Atrial fibrillation
     Route: 048
     Dates: start: 202108

REACTIONS (3)
  - Renal abscess [Recovered/Resolved]
  - Septic shock [Recovered/Resolved]
  - Pyelonephritis acute [Recovered/Resolved]

NARRATIVE: CASE EVENT DATE: 20211127
